FAERS Safety Report 20654364 (Version 2)
Quarter: 2022Q2

REPORT INFORMATION
  Report Type: Spontaneous
  Country: DE (occurrence: DE)
  Receive Date: 20220330
  Receipt Date: 20220405
  Transmission Date: 20220721
  Serious: Yes (Other)
  Sender: FDA-Public Use
  Company Number: DE-VIIV HEALTHCARE LIMITED-DE2022EME052427

PATIENT
  Sex: Female

DRUGS (6)
  1. RITONAVIR [Suspect]
     Active Substance: RITONAVIR
     Indication: Product used for unknown indication
     Dosage: 100 MG
     Route: 065
     Dates: start: 20160219
  2. MARAVIROC [Suspect]
     Active Substance: MARAVIROC
     Indication: Product used for unknown indication
     Route: 065
     Dates: start: 20160219
  3. DOLUTEGRAVIR [Suspect]
     Active Substance: DOLUTEGRAVIR
     Indication: Product used for unknown indication
     Dosage: 50 MG ,QD
     Route: 065
     Dates: start: 20160219
  4. ATAZANAVIR [Suspect]
     Active Substance: ATAZANAVIR
     Indication: Product used for unknown indication
     Dosage: 300MG
     Route: 065
     Dates: start: 20160219
  5. RALTEGRAVIR [Suspect]
     Active Substance: RALTEGRAVIR
     Indication: Product used for unknown indication
     Route: 065
  6. DARUNAVIR [Suspect]
     Active Substance: DARUNAVIR
     Indication: Product used for unknown indication
     Dosage: 800
     Route: 065

REACTIONS (2)
  - Psychotic disorder [Unknown]
  - Depression [Recovered/Resolved]
